FAERS Safety Report 8536965 (Version 2)
Quarter: 2013Q2

REPORT INFORMATION
  Report Type: Spontaneous
  Country: JP (occurrence: JP)
  Receive Date: 20120430
  Receipt Date: 20130422
  Transmission Date: 20140414
  Serious: Yes (Hospitalization)
  Sender: FDA-Public Use
  Company Number: JP-ELI_LILLY_AND_COMPANY-JP201204008909

PATIENT
  Age: 77 Year
  Sex: Female

DRUGS (1)
  1. FORTEO [Suspect]
     Dosage: UNK
     Route: 058
     Dates: start: 201104

REACTIONS (5)
  - Neoplasm [Unknown]
  - Choking sensation [Unknown]
  - Weight increased [Unknown]
  - Calculus urinary [Unknown]
  - Limb discomfort [Unknown]
